FAERS Safety Report 19003038 (Version 3)
Quarter: 2021Q2

REPORT INFORMATION
  Report Type: Spontaneous
  Country: CO (occurrence: CO)
  Receive Date: 20210312
  Receipt Date: 20210503
  Transmission Date: 20210717
  Serious: Yes (Other)
  Sender: FDA-Public Use
  Company Number: CO-PFIZER INC-2021243356

PATIENT
  Age: 55 Year
  Sex: Male

DRUGS (1)
  1. ENBREL [Suspect]
     Active Substance: ETANERCEPT
     Dosage: 50 MG, 1 INJECTION EVERY 14 DAYS
     Route: 058
     Dates: start: 20171128

REACTIONS (7)
  - Injury associated with device [Unknown]
  - Device breakage [Unknown]
  - Incorrect dose administered [Unknown]
  - Foreign body in skin or subcutaneous tissue [Unknown]
  - Off label use [Unknown]
  - Wound [Recovered/Resolved]
  - Device mechanical issue [Unknown]

NARRATIVE: CASE EVENT DATE: 20171128
